FAERS Safety Report 20205531 (Version 1)
Quarter: 2021Q4

REPORT INFORMATION
  Report Type: Spontaneous
  Country: JP (occurrence: JP)
  Receive Date: 20211220
  Receipt Date: 20211220
  Transmission Date: 20220303
  Serious: Yes (Other)
  Sender: FDA-Public Use
  Company Number: JP-NOVARTISPH-NVSJ2021JP020633

PATIENT
  Sex: Male

DRUGS (3)
  1. INDACATEROL [Suspect]
     Active Substance: INDACATEROL
     Indication: Chronic obstructive pulmonary disease
     Dosage: UNK
     Route: 055
  2. GLYCOPYRRONIUM\INDACATEROL [Suspect]
     Active Substance: GLYCOPYRRONIUM\INDACATEROL
     Indication: Chronic obstructive pulmonary disease
     Dosage: IT HAD BEEN USED FOR ABOUT 10 YEARS
     Route: 055
  3. GLYCOPYRRONIUM\INDACATEROL [Suspect]
     Active Substance: GLYCOPYRRONIUM\INDACATEROL
     Dosage: UNK
     Route: 055

REACTIONS (2)
  - Glaucoma [Unknown]
  - Asthma [Unknown]
